FAERS Safety Report 5576470-2 (Version None)
Quarter: 2007Q4

REPORT INFORMATION
  Report Type: 
  Country: None (occurrence: None)
  Receive Date: 20071228
  Receipt Date: 20071219
  Transmission Date: 20080405
  Serious: Yes (Other)
  Sender: FDA-Public Use
  Company Number: GB-AVENTIS-200721660GDDC

PATIENT
  Sex: Female

DRUGS (3)
  1. RIFAMPICIN + ISONIAZID + PYRAZINAMIDE [Suspect]
     Indication: TUBERCULOSIS
  2. PRIMIDONE [Suspect]
     Indication: EPILEPSY
  3. VALPROATE SODIUM [Concomitant]

REACTIONS (2)
  - DRUG INTERACTION [None]
  - TUBERCULOSIS [None]
